FAERS Safety Report 12920807 (Version 1)
Quarter: 2016Q4

REPORT INFORMATION
  Report Type: Spontaneous
  Country: US (occurrence: US)
  Receive Date: 20161107
  Receipt Date: 20161107
  Transmission Date: 20170207
  Serious: Yes (Other)
  Sender: FDA-Public Use
  Company Number: None

PATIENT
  Age: 59 Year
  Sex: Female
  Weight: 68.85 kg

DRUGS (7)
  1. MOVANTIK [Suspect]
     Active Substance: NALOXEGOL OXALATE
     Indication: CONSTIPATION
     Dosage: ?          QUANTITY:1 TABLET(S);?
     Route: 048
     Dates: start: 20161106, end: 20161106
  2. ZANAFLEX [Concomitant]
     Active Substance: TIZANIDINE HYDROCHLORIDE
  3. METHADONE [Concomitant]
     Active Substance: METHADONE HYDROCHLORIDE
  4. INSULIN [Concomitant]
     Active Substance: INSULIN NOS
  5. ISOSORBIDE. [Concomitant]
     Active Substance: ISOSORBIDE
  6. ATIVAN [Concomitant]
     Active Substance: LORAZEPAM
  7. OXYCODONE [Concomitant]
     Active Substance: OXYCODONE

REACTIONS (4)
  - Gastrointestinal disorder [None]
  - Abdominal distension [None]
  - Fear [None]
  - Abdominal pain [None]

NARRATIVE: CASE EVENT DATE: 20161106
